FAERS Safety Report 22343643 (Version 1)
Quarter: 2023Q2

REPORT INFORMATION
  Report Type: Spontaneous
  Country: JP (occurrence: JP)
  Receive Date: 20230519
  Receipt Date: 20230519
  Transmission Date: 20230721
  Serious: Yes (Hospitalization)
  Sender: FDA-Public Use
  Company Number: JP-DSPHARMA-2023SMP007690

PATIENT
  Age: 6 Decade
  Sex: Female

DRUGS (9)
  1. LATUDA [Suspect]
     Active Substance: LURASIDONE HYDROCHLORIDE
     Indication: Schizophrenia
     Dosage: 40 MG, QD
     Route: 048
  2. LATUDA [Suspect]
     Active Substance: LURASIDONE HYDROCHLORIDE
     Dosage: 60 MG, QD
     Route: 048
  3. LATUDA [Suspect]
     Active Substance: LURASIDONE HYDROCHLORIDE
     Dosage: 80 MG, QD
     Route: 048
  4. BLONANSERIN [Suspect]
     Active Substance: BLONANSERIN
     Indication: Schizophrenia
     Dosage: 24 MG, QD
     Route: 048
  5. INVEGA [Concomitant]
     Active Substance: PALIPERIDONE
     Indication: Schizophrenia
     Dosage: 12 MG, QD
     Route: 048
  6. CLOTIAZEPAM [Concomitant]
     Active Substance: CLOTIAZEPAM
     Dosage: 15 MG, QD
     Route: 048
  7. FLUNITRAZEPAM [Concomitant]
     Active Substance: FLUNITRAZEPAM
     Dosage: 3 MG, QD
     Route: 048
  8. LEVOMEPROMAZINE MALEATE [Concomitant]
     Active Substance: LEVOMEPROMAZINE MALEATE
     Dosage: 50 MG, QD
     Route: 048
  9. OLANZAPINE [Concomitant]
     Active Substance: OLANZAPINE
     Dosage: 5 MG, QD
     Route: 065

REACTIONS (3)
  - Lung neoplasm [Unknown]
  - Osteoarthritis [Unknown]
  - Asthenia [Unknown]
